FAERS Safety Report 8549990-6 (Version None)
Quarter: 2012Q3

REPORT INFORMATION
  Report Type: 
  Country: None (occurrence: None)
  Receive Date: 20120720
  Receipt Date: 20120720
  Transmission Date: 20120928
  Serious: Yes (Other)
  Sender: FDA-Public Use
  Company Number: None

PATIENT
  Sex: Male

DRUGS (1)
  1. AFINITOR [Suspect]
     Indication: PANCREATIC CARCINOMA
     Dosage: 10MG DAILY PO
     Route: 048
     Dates: start: 20120126, end: 20120718

REACTIONS (3)
  - FEELING HOT [None]
  - JOINT SWELLING [None]
  - ORAL MUCOSAL BLISTERING [None]
